FAERS Safety Report 17272022 (Version 1)
Quarter: 2020Q1

REPORT INFORMATION
  Report Type: Spontaneous
  Country: US (occurrence: US)
  Receive Date: 20200115
  Receipt Date: 20200115
  Transmission Date: 20200409
  Serious: No
  Sender: FDA-Public Use
  Company Number: US-BAYER-2020-007429

PATIENT
  Age: 50 Year
  Sex: Male

DRUGS (1)
  1. GADAVIST [Suspect]
     Active Substance: GADOBUTROL
     Indication: IMAGING PROCEDURE
     Dosage: UNK, ONCE
     Route: 042
     Dates: start: 20191227

REACTIONS (2)
  - Nausea [None]
  - Productive cough [None]

NARRATIVE: CASE EVENT DATE: 20191227
